FAERS Safety Report 21742078 (Version 1)
Quarter: 2022Q4

REPORT INFORMATION
  Report Type: Report from Study
  Country: FR (occurrence: FR)
  Receive Date: 20221216
  Receipt Date: 20221216
  Transmission Date: 20230113
  Serious: Yes (Other)
  Sender: FDA-Public Use
  Company Number: FR-JNJFOC-20221209880

PATIENT

DRUGS (3)
  1. RISPERDAL [Suspect]
     Active Substance: RISPERIDONE
     Indication: Product used for unknown indication
     Route: 065
  2. HALDOL [Suspect]
     Active Substance: HALOPERIDOL
     Indication: Product used for unknown indication
     Route: 065
  3. INVEGA [Suspect]
     Active Substance: PALIPERIDONE
     Indication: Product used for unknown indication
     Route: 065

REACTIONS (24)
  - Suicide attempt [Unknown]
  - Premature baby [Unknown]
  - Neonatal complications of substance abuse [Unknown]
  - Drug abuse [Unknown]
  - Drug abuser [Unknown]
  - Drug dependence [Unknown]
  - Drug use disorder [Unknown]
  - Substance abuse [Unknown]
  - Substance abuser [Unknown]
  - Substance dependence [Unknown]
  - Substance use disorder [Unknown]
  - Intentional overdose [Unknown]
  - Intentional product misuse [Unknown]
  - Drug withdrawal convulsions [Unknown]
  - Drug withdrawal headache [Unknown]
  - Foetal exposure during pregnancy [Unknown]
  - Drug withdrawal syndrome [Unknown]
  - Drug withdrawal syndrome neonatal [Unknown]
  - Dystonia [Unknown]
  - Tremor [Unknown]
  - Dyskinesia [Unknown]
  - Somnolence [Unknown]
  - Tachycardia [Unknown]
  - Aggression [Unknown]
